FAERS Safety Report 9000301 (Version 1)
Quarter: 2013Q1

REPORT INFORMATION
  Report Type: Spontaneous
  Country: US (occurrence: None)
  Receive Date: 20130102
  Receipt Date: 20130102
  Transmission Date: 20140127
  Serious: Yes (Hospitalization)
  Sender: FDA-Public Use
  Company Number: None

PATIENT
  Age: 76 Year
  Sex: Male
  Weight: 103.3 kg

DRUGS (2)
  1. DABIGATRAN [Suspect]
     Indication: ATRIAL FIBRILLATION
     Route: 048
     Dates: start: 20110804, end: 20120601
  2. ASPIRIN [Suspect]
     Route: 048
     Dates: start: 20110831

REACTIONS (6)
  - Gastric haemorrhage [None]
  - Fatigue [None]
  - Proctitis [None]
  - Haemorrhoids [None]
  - Haemoglobin decreased [None]
  - Dyspnoea exertional [None]
